FAERS Safety Report 17525694 (Version 4)
Quarter: 2020Q4

REPORT INFORMATION
  Report Type: Report from Study
  Country: US (occurrence: US)
  Receive Date: 20200310
  Receipt Date: 20201112
  Transmission Date: 20210113
  Serious: No
  Sender: FDA-Public Use
  Company Number: NVSC2020US068035

PATIENT
  Age: 74 Year
  Sex: Male

DRUGS (1)
  1. ENTRESTO [Suspect]
     Active Substance: SACUBITRIL\VALSARTAN
     Indication: CARDIAC FAILURE CHRONIC
     Dosage: 1 DF, BID (24 MG SACUBITRIL /26 MG VALSARTAN)
     Route: 048
     Dates: start: 20200226

REACTIONS (3)
  - Dyspnoea [Unknown]
  - Blood pressure decreased [Unknown]
  - Cough [Unknown]

NARRATIVE: CASE EVENT DATE: 20200226
